FAERS Safety Report 9254325 (Version 2)
Quarter: 2013Q2

REPORT INFORMATION
  Report Type: Report from Study
  Country: NL (occurrence: NL)
  Receive Date: 20130425
  Receipt Date: 20130617
  Transmission Date: 20140414
  Serious: Yes (Hospitalization)
  Sender: FDA-Public Use
  Company Number: PHHY2013NL040636

PATIENT
  Sex: Male
  Weight: 62 kg

DRUGS (1)
  1. ACZ885 [Suspect]
     Dosage: 150 MG, UNK
     Route: 058
     Dates: start: 20130327

REACTIONS (2)
  - Pyrexia [Recovered/Resolved]
  - Treatment failure [Unknown]
